FAERS Safety Report 9490848 (Version 1)
Quarter: 2013Q3

REPORT INFORMATION
  Report Type: Spontaneous
  Country: US (occurrence: None)
  Receive Date: 20130828
  Receipt Date: 20130828
  Transmission Date: 20140515
  Serious: No
  Sender: FDA-Public Use
  Company Number: None

PATIENT
  Age: 65 Year
  Sex: Male
  Weight: 77.11 kg

DRUGS (14)
  1. TRAZONE HCL 100 MG TAB [Suspect]
     Indication: DEPRESSION
     Dosage: STRENGTH: 100MG     50 MG. FOR 7 DAYS   100 MG. ON DAY 8   AT BEDTIME  BY MOUTH
     Route: 048
     Dates: start: 20130805, end: 20130813
  2. ALLOPURINOL [Concomitant]
  3. AMLODIPINE BESYLATE [Concomitant]
  4. ATORVASTATIN CALCIUM [Concomitant]
  5. CALCITRIOL [Concomitant]
  6. FINASTERIDE [Concomitant]
  7. FUROSEMIDE [Concomitant]
  8. LOSARTAN [Concomitant]
  9. METOPROLOL TARTRATE [Concomitant]
  10. NIACIN [Concomitant]
  11. SEVELAMER CARBONATE [Concomitant]
  12. ASPIRIN [Concomitant]
  13. FERROUS GLUCONATE [Concomitant]
  14. FOLIC ACID [Concomitant]

REACTIONS (9)
  - Pruritus generalised [None]
  - Dizziness [None]
  - Dry mouth [None]
  - Dyspnoea [None]
  - Vision blurred [None]
  - Dysgeusia [None]
  - Muscular weakness [None]
  - Nasal congestion [None]
  - Anger [None]
